FAERS Safety Report 25446094 (Version 2)
Quarter: 2025Q3

REPORT INFORMATION
  Report Type: Spontaneous
  Country: US (occurrence: US)
  Receive Date: 20250617
  Receipt Date: 20250703
  Transmission Date: 20251020
  Serious: Yes (Other)
  Sender: MERZ
  Company Number: US-MRZWEB-2025050000227

PATIENT

DRUGS (1)
  1. XEOMIN [Suspect]
     Active Substance: INCOBOTULINUMTOXINA
     Indication: Skin cosmetic procedure
     Dates: start: 202407, end: 202407

REACTIONS (2)
  - Injection site atrophy [Not Recovered/Not Resolved]
  - Injection site reaction [Unknown]
